FAERS Safety Report 8880129 (Version 1)
Quarter: 2012Q4

REPORT INFORMATION
  Report Type: 
  Country: JP (occurrence: JP)
  Receive Date: 20121031
  Receipt Date: 20121031
  Transmission Date: 20130627
  Serious: Yes (Other)
  Sender: FDA-Public Use
  Company Number: JP-ASTRAZENECA-2012SE79598

PATIENT
  Age: 60 Year
  Sex: Female

DRUGS (1)
  1. XYLOCAINE [Suspect]
     Dosage: Dose unknown
     Route: 065
     Dates: start: 20121008, end: 20121008

REACTIONS (1)
  - Shock [Recovered/Resolved]
